FAERS Safety Report 13178626 (Version 1)
Quarter: 2017Q1

REPORT INFORMATION
  Report Type: Spontaneous
  Country: US (occurrence: US)
  Receive Date: 20170202
  Receipt Date: 20170202
  Transmission Date: 20170428
  Serious: No
  Sender: FDA-Public Use
  Company Number: US-ASTRAZENECA-2017SE08671

PATIENT
  Age: 80 Year
  Sex: Female
  Weight: 95.3 kg

DRUGS (4)
  1. SYNTHROID [Concomitant]
     Active Substance: LEVOTHYROXINE SODIUM
     Indication: THYROID DISORDER
     Route: 048
     Dates: start: 2001
  2. LOSARTAN. [Concomitant]
     Active Substance: LOSARTAN
     Indication: BLOOD PRESSURE ABNORMAL
     Route: 048
  3. OTC MEDICATIONS [Concomitant]
     Active Substance: UNSPECIFIED INGREDIENT
     Indication: VAGINAL DISORDER
  4. ANASTRAZOLE [Suspect]
     Active Substance: ANASTROZOLE
     Indication: BREAST CANCER
     Route: 048
     Dates: start: 201208, end: 20170112

REACTIONS (12)
  - Fatigue [Unknown]
  - Myalgia [Unknown]
  - Weight increased [Unknown]
  - Vulvovaginal pruritus [Recovering/Resolving]
  - Vaginal mucosal blistering [Recovering/Resolving]
  - Pain [Unknown]
  - Stress [Unknown]
  - Drug dose omission [Unknown]
  - Vulvovaginal swelling [Recovering/Resolving]
  - Arthralgia [Unknown]
  - Fungal infection [Unknown]
  - Anxiety [Unknown]

NARRATIVE: CASE EVENT DATE: 2013
